FAERS Safety Report 23124712 (Version 1)
Quarter: 2023Q4

REPORT INFORMATION
  Report Type: Spontaneous
  Country: US (occurrence: US)
  Receive Date: 20231030
  Receipt Date: 20231030
  Transmission Date: 20240110
  Serious: Yes (Hospitalization)
  Sender: FDA-Public Use
  Company Number: US-ALNYLAM PHARMACEUTICALS, INC.-ALN-2023-005702

PATIENT

DRUGS (1)
  1. GIVLAARI [Suspect]
     Active Substance: GIVOSIRAN SODIUM
     Indication: Porphyria acute
     Dosage: UNK UNK, MONTHLY
     Route: 065

REACTIONS (5)
  - Sepsis [Unknown]
  - Vertigo [Unknown]
  - Respiratory failure [Unknown]
  - Porphyria acute [Unknown]
  - Depression [Unknown]
